FAERS Safety Report 22093991 (Version 1)
Quarter: 2023Q1

REPORT INFORMATION
  Report Type: Spontaneous
  Country: GB (occurrence: None)
  Receive Date: 20230314
  Receipt Date: 20230314
  Transmission Date: 20230418
  Serious: Yes (Hospitalization, Disabling)
  Sender: FDA-Public Use
  Company Number: GB-MHRA-MED-202303061142273540-GWYTV

PATIENT
  Age: 40 Year
  Sex: Female
  Weight: 104 kg

DRUGS (7)
  1. ENTRECTINIB [Suspect]
     Active Substance: ENTRECTINIB
     Indication: Lung neoplasm malignant
     Route: 065
     Dates: start: 20230223
  2. AMITRIPTYLINE [Concomitant]
     Active Substance: AMITRIPTYLINE
     Dates: start: 20200430
  3. FUROSEMIDE [Concomitant]
     Active Substance: FUROSEMIDE
     Dates: start: 20230127, end: 20230222
  4. INCRUSE ELLIPTA [Concomitant]
     Active Substance: UMECLIDINIUM BROMIDE
     Dates: start: 20230127
  5. NACSYS [Concomitant]
     Dates: start: 20230214
  6. NYSTATIN [Concomitant]
     Active Substance: NYSTATIN
     Dates: start: 20230214
  7. ALBUTEROL [Concomitant]
     Active Substance: ALBUTEROL
     Dates: start: 20230127

REACTIONS (1)
  - Cerebrovascular accident [Recovering/Resolving]

NARRATIVE: CASE EVENT DATE: 20230226
